FAERS Safety Report 9178255 (Version 1)
Quarter: 2012Q4

REPORT INFORMATION
  Report Type: 
  Country: US (occurrence: US)
  Receive Date: 20121029
  Receipt Date: 20121029
  Transmission Date: 20130627
  Serious: Yes (Other)
  Sender: FDA-Public Use
  Company Number: US-PFIZER INC-2012268211

PATIENT
  Age: 60 Year
  Sex: Female

DRUGS (17)
  1. PRISTIQ [Suspect]
     Indication: DEPRESSIVE DISORDER
     Dosage: 100 mg, 1x/day
     Route: 048
  2. VITAMIN D2 [Concomitant]
     Dosage: 50000 unit, weekly
     Route: 048
  3. CALCIUM + VITAMIN D [Concomitant]
     Dosage: 600 mg (1,500)-200 unit, 2x/day
     Route: 048
  4. HYDROCODONE-ACETAMINOPHEN [Concomitant]
     Dosage: 5 mg-500 mg, Q4-6H PRN
     Route: 048
  5. ADVAIR DISKUS [Concomitant]
     Dosage: 100 mcg-50 mcg, 2x/day 1 Puff (s) INH
  6. ASPIRIN [Concomitant]
     Dosage: 81 mg, 1x/day
     Route: 048
  7. PRAVASTATIN [Concomitant]
     Dosage: 80 mg, 1x/day
     Route: 048
  8. CYCLOBENZAPRINE [Concomitant]
     Dosage: 10 mg, 3x/day
     Route: 048
  9. GABAPENTIN [Concomitant]
     Dosage: 1200 mg, 3x/day
     Route: 048
  10. PRILOSEC [Concomitant]
     Dosage: 40 mg, 1x/day
     Route: 048
  11. ALPRAZOLAM [Concomitant]
     Dosage: 0.5 mg, 2x/day PRN
     Route: 048
  12. BUPROPION HCL [Concomitant]
     Dosage: 100 mg, 2x/day
     Route: 048
  13. BACTRIM DS [Concomitant]
     Dosage: 800 mg-160 mg, 2x/day
     Route: 048
  14. METFORMIN [Concomitant]
     Dosage: 1000 mg, 2x/day
     Route: 048
  15. ESTER-C [Concomitant]
     Dosage: 1,000 mg-200 mg, 2x/day
     Route: 048
  16. GLIPIZIDE [Concomitant]
     Dosage: 5 mg, 2x/day
     Route: 048
  17. LOSARTAN [Concomitant]
     Dosage: 100 mg, daily

REACTIONS (9)
  - Diabetes mellitus inadequate control [Unknown]
  - Diabetic neuropathy [Unknown]
  - Weight decreased [Unknown]
  - Anaemia [Unknown]
  - Colonoscopy [Unknown]
  - Chronic obstructive pulmonary disease [Unknown]
  - Rhinitis allergic [Unknown]
  - Feeling abnormal [Unknown]
  - Drug effect incomplete [Unknown]
